FAERS Safety Report 5355691-8 (Version None)
Quarter: 2007Q2

REPORT INFORMATION
  Report Type: 
  Country: None (occurrence: None)
  Receive Date: 20070613
  Receipt Date: 20070604
  Transmission Date: 20071010
  Serious: Yes (Death, Hospitalization)
  Sender: FDA-Public Use
  Company Number: DE-AMGEN-UK227803

PATIENT
  Sex: Female

DRUGS (11)
  1. KINERET [Suspect]
     Indication: RHEUMATOID ARTHRITIS
     Route: 065
     Dates: start: 20030401, end: 20030501
  2. ADALIMUMAB [Suspect]
     Dates: start: 20030601, end: 20040301
  3. DICLOFENAC [Suspect]
  4. DECORTIN [Suspect]
  5. METHOTREXATE [Concomitant]
     Dates: start: 20031101, end: 20031201
  6. PROSORBA [Concomitant]
     Dates: start: 20041101, end: 20041101
  7. HYDROXYCHLOROQUINE SULFATE [Concomitant]
     Dates: start: 20031101, end: 20031201
  8. METOPROLOL SUCCINATE [Concomitant]
  9. LASIX [Concomitant]
  10. EUTHYROX [Concomitant]
  11. NEXIUM [Concomitant]

REACTIONS (4)
  - ATRIAL FIBRILLATION [None]
  - CARDIAC FAILURE [None]
  - GASTRIC ULCER [None]
  - GASTRIC ULCER HAEMORRHAGE [None]
